FAERS Safety Report 21498530 (Version 2)
Quarter: 2022Q4

REPORT INFORMATION
  Report Type: Spontaneous
  Country: PT (occurrence: PT)
  Receive Date: 20221024
  Receipt Date: 20221025
  Transmission Date: 20230113
  Serious: Yes (Death, Other)
  Sender: FDA-Public Use
  Company Number: PT-009507513-2210PRT007840

PATIENT
  Age: 61 Year
  Sex: Male

DRUGS (1)
  1. KEYTRUDA [Suspect]
     Active Substance: PEMBROLIZUMAB
     Indication: Malignant melanoma stage III
     Dosage: 400 MILLIGRAM, EVERY 6 WEEKS
     Dates: start: 20220628

REACTIONS (2)
  - Hepatic failure [Fatal]
  - Latent tuberculosis [Unknown]

NARRATIVE: CASE EVENT DATE: 20220101
